FAERS Safety Report 17583189 (Version 2)
Quarter: 2020Q2

REPORT INFORMATION
  Report Type: Spontaneous
  Country: US (occurrence: US)
  Receive Date: 20200326
  Receipt Date: 20200404
  Transmission Date: 20200713
  Serious: Yes (Life-Threatening, Disabling, Other)
  Sender: FDA-Public Use
  Company Number: US-AUROBINDO-AUR-APL-2020-014665

PATIENT
  Sex: Female

DRUGS (1)
  1. AMIODARONE HYDROCHLORIDE 200 MG TABLET [Suspect]
     Active Substance: AMIODARONE HYDROCHLORIDE
     Indication: ATRIAL FIBRILLATION
     Dosage: UNK
     Route: 065
     Dates: start: 201504

REACTIONS (13)
  - Fatigue [Unknown]
  - Pulmonary contusion [Unknown]
  - Cough [Unknown]
  - Blindness [Unknown]
  - Coordination abnormal [Unknown]
  - Eye injury [Unknown]
  - Vitreous floaters [Unknown]
  - Dyspnoea [Unknown]
  - Corneal disorder [Unknown]
  - Visual acuity reduced [Unknown]
  - Eye pain [Unknown]
  - Ulcerative keratitis [Unknown]
  - Off label use [Unknown]

NARRATIVE: CASE EVENT DATE: 201512
